FAERS Safety Report 4551031-2 (Version None)
Quarter: 2005Q1

REPORT INFORMATION
  Report Type: 
  Country: None (occurrence: None)
  Receive Date: 20050113
  Receipt Date: 20040503
  Transmission Date: 20050727
  Serious: No
  Sender: FDA-Public Use
  Company Number: US-BRISTOL-MYERS SQUIBB COMPANY-12577987

PATIENT
  Sex: Male

DRUGS (3)
  1. DESYREL [Suspect]
  2. ZOLOFT [Suspect]
  3. ZYPREXA [Suspect]

REACTIONS (2)
  - MANIA [None]
  - PHYSICAL ASSAULT [None]
